FAERS Safety Report 8548002 (Version 7)
Quarter: 2013Q1

REPORT INFORMATION
  Report Type: Spontaneous
  Country: US (occurrence: US)
  Receive Date: 20120504
  Receipt Date: 20130122
  Transmission Date: 20140127
  Serious: Yes (Hospitalization, Disabling, Other)
  Sender: FDA-Public Use
  Company Number: US-009507513-1205USA00029

PATIENT
  Sex: 0

DRUGS (8)
  1. FOSAMAX [Suspect]
     Indication: OSTEOPOROSIS
     Dosage: 10 MG, UNK
     Route: 048
     Dates: start: 199510, end: 2002
  2. FOSAMAX [Suspect]
     Indication: OSTEOPOROSIS POSTMENOPAUSAL
     Dosage: 70 MG, QW
     Route: 048
     Dates: start: 2002, end: 20100706
  3. ALENDRONATE SODIUM [Suspect]
     Indication: OSTEOPOROSIS
     Dosage: 70 MG, QW
     Route: 048
     Dates: start: 20100108, end: 20100420
  4. HYDROCORTISONE [Suspect]
     Indication: ADDISON^S DISEASE
     Dosage: 20-40 MG, QD
     Route: 048
     Dates: start: 199501
  5. FLORINEF [Concomitant]
     Indication: ADDISON^S DISEASE
     Dosage: 0.1 MG, QD
     Route: 048
     Dates: start: 199501
  6. VITAMINS (UNSPECIFIED) [Concomitant]
     Dosage: 1-2, QD
     Route: 048
  7. CALCIUM (UNSPECIFIED) [Concomitant]
     Indication: OSTEOPOROSIS
     Dosage: 600-1500 MG, QD
     Route: 048
  8. VITAMIN D (UNSPECIFIED) [Concomitant]
     Indication: OSTEOPOROSIS
     Dosage: 2000 IU, QD
     Route: 048

REACTIONS (47)
  - Femur fracture [Unknown]
  - Internal fixation of fracture [Not Recovered/Not Resolved]
  - Intramedullary rod insertion [Not Recovered/Not Resolved]
  - Tonsillectomy [Unknown]
  - Cataract operation [Unknown]
  - Surgery [Unknown]
  - Intervertebral disc operation [Unknown]
  - Upper limb fracture [Unknown]
  - Sepsis [Unknown]
  - Pneumonia [Unknown]
  - Urinary tract infection [Unknown]
  - Spinal laminectomy [Unknown]
  - Tremor [Unknown]
  - Dehydration [Unknown]
  - Respiratory failure [Unknown]
  - Hypovolaemia [Unknown]
  - Septic shock [Unknown]
  - Urosepsis [Unknown]
  - Asthenia [Unknown]
  - Femur fracture [Not Recovered/Not Resolved]
  - Osteopenia [Unknown]
  - Sciatica [Unknown]
  - Glaucoma [Unknown]
  - Hypertension [Unknown]
  - Intervertebral disc protrusion [Unknown]
  - Spinal osteoarthritis [Unknown]
  - Intervertebral disc space narrowing [Unknown]
  - Aortic calcification [Unknown]
  - Arthritis [Unknown]
  - Iron deficiency anaemia [Unknown]
  - Anxiety [Unknown]
  - Drug intolerance [Unknown]
  - Anaemia postoperative [Unknown]
  - Scoliosis [Unknown]
  - Intervertebral disc protrusion [Unknown]
  - Intervertebral disc disorder [Unknown]
  - Hypertrophy [Unknown]
  - Vertebral foraminal stenosis [Unknown]
  - Lumbar spinal stenosis [Unknown]
  - Synovial cyst [Unknown]
  - Inappropriate schedule of drug administration [Unknown]
  - Balance disorder [Unknown]
  - Asthma [Unknown]
  - Back pain [Not Recovered/Not Resolved]
  - Gastrooesophageal reflux disease [Unknown]
  - Pain in extremity [Unknown]
  - Bone lesion [Unknown]
